FAERS Safety Report 14471246 (Version 1)
Quarter: 2018Q1

REPORT INFORMATION
  Report Type: Spontaneous
  Country: US (occurrence: US)
  Receive Date: 20180131
  Receipt Date: 20180131
  Transmission Date: 20180509
  Serious: No
  Sender: FDA-Public Use
  Company Number: US-PRAGMA PHARMACEUTICALS, LLC-2017PRG00079

PATIENT
  Sex: Female

DRUGS (1)
  1. KEFLEX [Suspect]
     Active Substance: CEPHALEXIN
     Dosage: 4 CAPSULES, PER DAY
     Dates: start: 20170919, end: 20170925

REACTIONS (1)
  - Vulvovaginal candidiasis [Unknown]

NARRATIVE: CASE EVENT DATE: 201709
